FAERS Safety Report 9339434 (Version 2)
Quarter: 2013Q3

REPORT INFORMATION
  Report Type: Spontaneous
  Country: US (occurrence: US)
  Receive Date: 20130610
  Receipt Date: 20130717
  Transmission Date: 20140515
  Serious: Yes (Other)
  Sender: FDA-Public Use
  Company Number: US-MERCK-1306USA003301

PATIENT
  Age: 82 Year
  Sex: Female

DRUGS (4)
  1. JANUVIA [Suspect]
     Indication: TYPE 2 DIABETES MELLITUS
     Dosage: 100 MG/UNSPECIFIED
     Route: 048
  2. METFORMIN [Concomitant]
  3. AMARYL [Concomitant]
  4. LANTUS [Concomitant]

REACTIONS (1)
  - Pancreatic carcinoma [Unknown]
